FAERS Safety Report 23258894 (Version 2)
Quarter: 2024Q3

REPORT INFORMATION
  Report Type: Spontaneous
  Country: CA (occurrence: CA)
  Receive Date: 20231204
  Receipt Date: 20240701
  Transmission Date: 20241016
  Serious: Yes (Other)
  Sender: PFIZER
  Company Number: CA-PFIZER INC-202300102424

PATIENT
  Age: 49 Year
  Sex: Female
  Weight: 84 kg

DRUGS (5)
  1. RUXIENCE [Suspect]
     Active Substance: RITUXIMAB-PVVR
     Indication: Granulomatosis with polyangiitis
     Dosage: 500 MG (DAY 1) (Q 6 MONTHS )
     Route: 042
     Dates: start: 20230515, end: 20230515
  2. RUXIENCE [Suspect]
     Active Substance: RITUXIMAB-PVVR
     Indication: Microscopic polyangiitis
     Dosage: 1000 MG, SINGLE DOSE
     Route: 042
     Dates: start: 20231208
  3. RUXIENCE [Suspect]
     Active Substance: RITUXIMAB-PVVR
     Dosage: 1000 MG (1000MG, SINGLE DOSE)
     Route: 042
     Dates: start: 20240626
  4. METHOTREXATE [Concomitant]
     Active Substance: METHOTREXATE
     Indication: Granulomatosis with polyangiitis
     Dosage: 1 DF
  5. METHOTREXATE [Concomitant]
     Active Substance: METHOTREXATE
     Indication: Microscopic polyangiitis

REACTIONS (9)
  - Deafness [Unknown]
  - Headache [Unknown]
  - Nausea [Unknown]
  - Condition aggravated [Unknown]
  - Weight increased [Unknown]
  - Off label use [Unknown]
  - Off label use [Unknown]
  - Off label use [Unknown]
  - Intentional product use issue [Unknown]

NARRATIVE: CASE EVENT DATE: 20230101
